FAERS Safety Report 7384031-8 (Version None)
Quarter: 2011Q1

REPORT INFORMATION
  Report Type: 
  Country: None (occurrence: None)
  Receive Date: 20110330
  Receipt Date: 20110317
  Transmission Date: 20110831
  Serious: Yes (Hospitalization)
  Sender: FDA-Public Use
  Company Number: BR-GENENTECH-315615

PATIENT
  Sex: Female
  Weight: 50 kg

DRUGS (3)
  1. ALENDRONATE SODIUM [Concomitant]
     Indication: PRODUCT USED FOR UNKNOWN INDICATION
     Dosage: 70 MG, UNK
  2. CALCIUM CARBONATE [Concomitant]
     Indication: PRODUCT USED FOR UNKNOWN INDICATION
     Dosage: 500 MG, UNK
  3. RITUXIMAB [Suspect]
     Indication: RHEUMATOID ARTHRITIS
     Dosage: UNK
     Route: 042
     Dates: start: 20110303, end: 20110303

REACTIONS (6)
  - DYSURIA [None]
  - COLD SWEAT [None]
  - CONSTIPATION [None]
  - ABDOMINAL PAIN [None]
  - SYNCOPE [None]
  - INFECTION [None]
